FAERS Safety Report 19896119 (Version 1)
Quarter: 2021Q3

REPORT INFORMATION
  Report Type: Spontaneous
  Country: IT (occurrence: IT)
  Receive Date: 20210929
  Receipt Date: 20210929
  Transmission Date: 20211014
  Serious: Yes (Hospitalization, Other)
  Sender: FDA-Public Use
  Company Number: IT-DSJP-DSE-2021-131109

PATIENT
  Age: 74 Year
  Sex: Female

DRUGS (5)
  1. ENOXAPARIN [Suspect]
     Active Substance: ENOXAPARIN
     Dosage: 2000 UNK, BID
     Dates: start: 202012
  2. PEMETREXED. [Suspect]
     Active Substance: PEMETREXED
  3. ENOXAPARIN [Suspect]
     Active Substance: ENOXAPARIN
     Indication: PRODUCT USED FOR UNKNOWN INDICATION
     Dosage: 4000 UNK, BID
     Dates: start: 202006
  4. CARBOPLATIN. [Suspect]
     Active Substance: CARBOPLATIN
     Indication: DISEASE PROGRESSION
     Dosage: UNK
     Dates: start: 2020
  5. EDOXABAN [Suspect]
     Active Substance: EDOXABAN TOSYLATE
     Indication: PRODUCT USED FOR UNKNOWN INDICATION
     Dosage: 60 UNK, QD
     Dates: start: 2020, end: 202012

REACTIONS (8)
  - Ventricular tachycardia [Unknown]
  - Amnesia [Unknown]
  - Cerebral artery embolism [Unknown]
  - Central nervous system lesion [Unknown]
  - Thrombocytopenia [Unknown]
  - Anaemia [Unknown]
  - Renal failure [Unknown]
  - Endocarditis [Unknown]

NARRATIVE: CASE EVENT DATE: 202011
